FAERS Safety Report 7285819-4 (Version None)
Quarter: 2011Q1

REPORT INFORMATION
  Report Type: 
  Country: None (occurrence: None)
  Receive Date: 20110125
  Receipt Date: 20110112
  Transmission Date: 20110831
  Serious: Yes (Other)
  Sender: FDA-Public Use
  Company Number: 2011SP002008

PATIENT
  Sex: Female

DRUGS (2)
  1. RIBAVIRIN [Suspect]
     Indication: HEPATITIS
     Dates: start: 20100401
  2. PEGASYS [Suspect]
     Indication: HEPATITIS
     Dates: start: 20100401

REACTIONS (2)
  - HEPATIC CIRRHOSIS [None]
  - PLATELET COUNT DECREASED [None]
